FAERS Safety Report 6235064-6 (Version None)
Quarter: 2009Q2

REPORT INFORMATION
  Report Type: 
  Country: None (occurrence: None)
  Receive Date: 20090618
  Receipt Date: 20090602
  Transmission Date: 20091009
  Serious: Yes (Other)
  Sender: FDA-Public Use
  Company Number: PHHY2009CA22121

PATIENT
  Sex: Male

DRUGS (2)
  1. DIOVAN [Suspect]
     Dosage: 360 MG/DAY
     Route: 048
  2. BISOPROLOL [Concomitant]

REACTIONS (5)
  - ABDOMINAL PAIN [None]
  - CARDIOMYOPATHY [None]
  - EJECTION FRACTION DECREASED [None]
  - ERYTHEMA [None]
  - EYELID OEDEMA [None]
